FAERS Safety Report 6216089-3 (Version None)
Quarter: 2009Q2

REPORT INFORMATION
  Report Type: 
  Country: None (occurrence: None)
  Receive Date: 20090605
  Receipt Date: 20090603
  Transmission Date: 20091009
  Serious: Yes (Other)
  Sender: FDA-Public Use
  Company Number: AU-ROCHE-636081

PATIENT
  Age: 30 Year
  Sex: Female

DRUGS (4)
  1. MYCOPHENOLATE MOFETIL [Suspect]
     Route: 065
  2. ANTI-THYMOCYTE GLOBULIN NOS [Concomitant]
  3. ARANESP [Concomitant]
     Route: 058
     Dates: start: 20080211
  4. CALCIFEROL [Concomitant]

REACTIONS (2)
  - ANAEMIA [None]
  - APLASIA PURE RED CELL [None]
